FAERS Safety Report 15938838 (Version 1)
Quarter: 2019Q1

REPORT INFORMATION
  Report Type: Report from Study
  Country: None (occurrence: AR)
  Receive Date: 20190208
  Receipt Date: 20190208
  Transmission Date: 20190417
  Serious: Yes (Other)
  Sender: FDA-Public Use
  Company Number: AR-ABBVIE-18K-007-2526862-00

PATIENT
  Age: 63 Year
  Sex: Male

DRUGS (1)
  1. HUMIRA [Suspect]
     Active Substance: ADALIMUMAB
     Indication: COLITIS ULCERATIVE
     Route: 058
     Dates: start: 20171103, end: 2018

REACTIONS (7)
  - Gastrointestinal inflammation [Unknown]
  - Respiratory disorder [Unknown]
  - Listless [Unknown]
  - Intestinal stenosis [Not Recovered/Not Resolved]
  - Gastrointestinal oedema [Not Recovered/Not Resolved]
  - Intestinal obstruction [Unknown]
  - Fatigue [Unknown]

NARRATIVE: CASE EVENT DATE: 20180922
